FAERS Safety Report 19802908 (Version 1)
Quarter: 2021Q3

REPORT INFORMATION
  Report Type: Spontaneous
  Country: US (occurrence: US)
  Receive Date: 20210903
  Receipt Date: 20210903
  Transmission Date: 20211014
  Serious: Yes (Hospitalization)
  Sender: FDA-Public Use
  Company Number: None

PATIENT
  Sex: Female

DRUGS (1)
  1. KISQALI [Suspect]
     Active Substance: RIBOCICLIB
     Indication: BENIGN BREAST NEOPLASM
     Dosage: ?          OTHER DOSE:3 TABS;?
     Route: 048
     Dates: start: 202104

REACTIONS (1)
  - Chest pain [None]
